FAERS Safety Report 23971885 (Version 3)
Quarter: 2024Q2

REPORT INFORMATION
  Report Type: Report from Study
  Country: BR (occurrence: BR)
  Receive Date: 20240613
  Receipt Date: 20240628
  Transmission Date: 20240716
  Serious: Yes (Other)
  Sender: FDA-Public Use
  Company Number: BR-002147023-NVSC2024BR115424

PATIENT
  Sex: Male
  Weight: 70 kg

DRUGS (7)
  1. DIOVAN [Suspect]
     Active Substance: VALSARTAN
     Indication: Hypertension
     Dosage: 160 MG (WITH 28 TABLETS)
     Route: 048
  2. DIOVAN [Suspect]
     Active Substance: VALSARTAN
     Dosage: 80 MG (WITH 28 TABLETS)
     Route: 048
  3. DIOVAN [Suspect]
     Active Substance: VALSARTAN
     Dosage: 40 MG (WITH 28 COATED TABLETS DIV)
     Route: 048
  4. SOLIFENACIN\TAMSULOSIN [Concomitant]
     Active Substance: SOLIFENACIN\TAMSULOSIN
     Indication: Benign prostatic hyperplasia
     Dosage: 1 DOSAGE FORM, QD, QD (6MG/0,4MG TABLET, 2 YEARS AGO)
     Route: 048
  5. SYNTHROID [Concomitant]
     Active Substance: LEVOTHYROXINE SODIUM
     Indication: Hypothyroidism
     Dosage: 1 DOSAGE FORM, QD (2 YEARS AGO)
     Route: 048
  6. SIMVASTATIN [Concomitant]
     Active Substance: SIMVASTATIN
     Indication: Blood cholesterol abnormal
     Dosage: 10 MG, QD (2 YEARS AGO)
     Route: 048
  7. AMIODARONE [Concomitant]
     Active Substance: AMIODARONE
     Indication: Cardiac disorder
     Dosage: 200 MG, QD (2 YEARS AGO)
     Route: 048

REACTIONS (11)
  - Loss of consciousness [Unknown]
  - Malaise [Recovered/Resolved]
  - Balance disorder [Recovered/Resolved]
  - Dizziness [Recovered/Resolved]
  - Sensory loss [Recovered/Resolved]
  - Product availability issue [Unknown]
  - Scratch [Unknown]
  - Fall [Unknown]
  - Injury [Unknown]
  - Dizziness [Recovered/Resolved]
  - Balance disorder [Unknown]
